FAERS Safety Report 10744326 (Version 2)
Quarter: 2015Q1

REPORT INFORMATION
  Report Type: Spontaneous
  Country: US (occurrence: US)
  Receive Date: 20150128
  Receipt Date: 20150326
  Transmission Date: 20150721
  Serious: No
  Sender: FDA-Public Use
  Company Number: US-PFIZER INC-2015030505

PATIENT
  Age: 74 Year
  Sex: Female

DRUGS (1)
  1. PREMARIN [Suspect]
     Active Substance: ESTROGENS, CONJUGATED
     Indication: HYSTERECTOMY
     Dosage: 1.250
     Dates: start: 1976

REACTIONS (4)
  - Stress urinary incontinence [Unknown]
  - Mood altered [Unknown]
  - Drug effect decreased [Unknown]
  - Irritability [Unknown]

NARRATIVE: CASE EVENT DATE: 201501
